FAERS Safety Report 24906158 (Version 1)
Quarter: 2025Q1

REPORT INFORMATION
  Report Type: Report from Study
  Country: ES (occurrence: ES)
  Receive Date: 20250130
  Receipt Date: 20250130
  Transmission Date: 20250409
  Serious: Yes (Death, Other)
  Sender: ABBVIE
  Company Number: ES-ABBVIE-6090096

PATIENT
  Age: 74 Year
  Sex: Female
  Weight: 85 kg

DRUGS (2)
  1. CARBIDOPA\LEVODOPA [Suspect]
     Active Substance: CARBIDOPA\LEVODOPA
     Indication: Parkinson^s disease
     Route: 050
     Dates: start: 20160518
  2. CARBIDOPA\LEVODOPA [Suspect]
     Active Substance: CARBIDOPA\LEVODOPA

REACTIONS (4)
  - Death [Fatal]
  - Incorrect route of product administration [Unknown]
  - Device occlusion [Unknown]
  - Perforated ulcer [Unknown]

NARRATIVE: CASE EVENT DATE: 20250101
